FAERS Safety Report 8525622-8 (Version None)
Quarter: 2012Q3

REPORT INFORMATION
  Report Type: 
  Country: None (occurrence: None)
  Receive Date: 20120720
  Receipt Date: 20120710
  Transmission Date: 20120928
  Serious: Yes (Other)
  Sender: FDA-Public Use
  Company Number: JP-VERTEX PHARMACEUTICALS INC.-AE-2012-007679

PATIENT
  Age: 69 Year
  Sex: Female

DRUGS (11)
  1. PEGINTERFERON ALFA-2B [Concomitant]
     Route: 058
     Dates: start: 20120228
  2. RIBAVIRIN [Concomitant]
     Indication: HEPATITIS C
     Route: 048
     Dates: start: 20120207, end: 20120220
  3. MARZULENE-S [Concomitant]
     Route: 048
     Dates: end: 20120330
  4. RIBAVIRIN [Concomitant]
     Route: 048
     Dates: start: 20120221, end: 20120305
  5. PEGINTERFERON ALFA-2B [Concomitant]
     Indication: HEPATITIS C
     Route: 058
     Dates: start: 20120207, end: 20120221
  6. FAMOTIDINE [Concomitant]
     Route: 048
  7. MUCOSTA [Concomitant]
     Route: 048
     Dates: end: 20120330
  8. TELAVIC (TELAPREVIR) [Suspect]
     Indication: HEPATITIS C
     Route: 048
     Dates: start: 20120207, end: 20120322
  9. TELAVIC (TELAPREVIR) [Suspect]
     Route: 048
     Dates: start: 20120323, end: 20120504
  10. RIBAVIRIN [Concomitant]
     Route: 048
     Dates: start: 20120306
  11. URSO 250 [Concomitant]
     Route: 048
     Dates: end: 20120420

REACTIONS (2)
  - HAEMOGLOBIN DECREASED [None]
  - WHITE BLOOD CELL COUNT DECREASED [None]
